FAERS Safety Report 22015257 (Version 2)
Quarter: 2023Q1

REPORT INFORMATION
  Report Type: Report from Study
  Country: JP (occurrence: JP)
  Receive Date: 20230221
  Receipt Date: 20230307
  Transmission Date: 20230417
  Serious: No
  Sender: FDA-Public Use
  Company Number: JP-MSD-LAG010764-004

PATIENT
  Age: 68 Year
  Sex: Male

DRUGS (4)
  1. MOLNUPIRAVIR [Suspect]
     Active Substance: MOLNUPIRAVIR
     Indication: COVID-19 treatment
     Dosage: 800 MILLIGRAM, BID
     Route: 048
     Dates: start: 20221223, end: 20221227
  2. HERBALS [Concomitant]
     Active Substance: HERBALS
     Indication: COVID-19 treatment
     Dosage: UNK
     Route: 048
  3. CHIKUJOUNTANTO [Concomitant]
     Indication: COVID-19 treatment
     Dosage: UNK
     Route: 065
  4. TEPRENONE [Concomitant]
     Active Substance: TEPRENONE
     Indication: COVID-19 treatment
     Dosage: UNK
     Route: 065

REACTIONS (2)
  - Vomiting [Recovering/Resolving]
  - Product use in unapproved indication [Unknown]

NARRATIVE: CASE EVENT DATE: 20221223
